APPROVED DRUG PRODUCT: DISOPYRAMIDE PHOSPHATE
Active Ingredient: DISOPYRAMIDE PHOSPHATE
Strength: EQ 150MG BASE
Dosage Form/Route: CAPSULE;ORAL
Application: A070471 | Product #001
Applicant: RISING PHARMA HOLDINGS INC
Approved: Dec 10, 1985 | RLD: No | RS: No | Type: DISCN